FAERS Safety Report 7466730-2 (Version None)
Quarter: 2011Q2

REPORT INFORMATION
  Report Type: 
  Country: None (occurrence: None)
  Receive Date: 20110509
  Receipt Date: 20110503
  Transmission Date: 20111010
  Serious: Yes (Other)
  Sender: FDA-Public Use
  Company Number: PHHY2010GB90040

PATIENT

DRUGS (6)
  1. DIHYDROCODEINE BITARTRATE INJ [Suspect]
     Indication: ILL-DEFINED DISORDER
     Dosage: UNK UKN, UNK
     Route: 064
  2. CO-DANTHRAMER [Concomitant]
     Dosage: UNK UKN, UNK
     Route: 064
  3. ACYCLOVIR [Concomitant]
     Dosage: UNK UKN, UNK
     Route: 064
  4. CEFADROXIL [Concomitant]
     Dosage: UNK UKN, UNK
     Route: 064
  5. ACETAMINOPHEN [Suspect]
     Dosage: MATERNAL DOSE: 7.5 G
     Route: 064
  6. CLOTRIMAZOLE [Concomitant]
     Dosage: UNK UKN, UNK
     Route: 064

REACTIONS (3)
  - STRABISMUS [None]
  - DRUG EXPOSURE DURING PREGNANCY [None]
  - SPINA BIFIDA [None]
